FAERS Safety Report 6667580-7 (Version None)
Quarter: 2010Q2

REPORT INFORMATION
  Report Type: 
  Country: None (occurrence: None)
  Receive Date: 20100405
  Receipt Date: 20100324
  Transmission Date: 20101027
  Serious: Yes (Other)
  Sender: FDA-Public Use
  Company Number: US-MERCK-1004USA00097

PATIENT
  Sex: Male

DRUGS (11)
  1. PRINIVIL [Suspect]
     Indication: HYPERTENSION
     Route: 048
  2. GLUCOTROL [Suspect]
     Indication: TYPE 2 DIABETES MELLITUS
     Route: 065
  3. GLUCOTROL XL [Suspect]
     Indication: DIABETES MELLITUS
     Route: 065
     Dates: start: 19980101, end: 19980101
  4. GLUCOPHAGE [Suspect]
     Indication: DIABETES MELLITUS
     Route: 065
  5. GLIPIZIDE [Suspect]
     Indication: DIABETES MELLITUS
     Route: 065
     Dates: start: 20080101
  6. ASPIRIN [Suspect]
     Indication: BACK PAIN
     Route: 065
     Dates: end: 20010101
  7. ASPIRIN [Suspect]
     Route: 065
     Dates: start: 20010101
  8. CALCIUM (UNSPECIFIED) AND VITAMIN D (UNSPECIFIED) [Suspect]
     Route: 065
     Dates: end: 20010201
  9. VITAMINS (UNSPECIFIED) [Suspect]
     Route: 065
  10. ALUMINUM SULFATE AND CALCIUM ACETATE [Suspect]
     Route: 065
     Dates: start: 20010207, end: 20010207
  11. PRAVASTATIN SODIUM [Suspect]
     Indication: BLOOD CHOLESTEROL INCREASED
     Route: 065

REACTIONS (7)
  - BLOOD GLUCOSE INCREASED [None]
  - DRUG HYPERSENSITIVITY [None]
  - ERYTHEMA [None]
  - GLYCOSYLATED HAEMOGLOBIN INCREASED [None]
  - INSOMNIA [None]
  - PRURITUS [None]
  - RASH [None]
